FAERS Safety Report 5103615-0 (Version None)
Quarter: 2006Q3

REPORT INFORMATION
  Report Type: 
  Country: None (occurrence: None)
  Receive Date: 20060913
  Receipt Date: 20060911
  Transmission Date: 20061208
  Serious: Yes (Hospitalization)
  Sender: FDA-Public Use
  Company Number: US-GLAXOSMITHKLINE-A0619724A

PATIENT
  Age: 62 Year
  Sex: Female

DRUGS (4)
  1. COMMIT [Suspect]
     Indication: SMOKING CESSATION THERAPY
     Route: 002
     Dates: start: 20050601, end: 20060908
  2. THYROID TAB [Concomitant]
  3. ANTIDEPRESSANT [Concomitant]
  4. GLYBURIDE [Concomitant]

REACTIONS (15)
  - ABDOMINAL PAIN [None]
  - ABDOMINAL PAIN UPPER [None]
  - ANXIETY [None]
  - ASTHENIA [None]
  - COLD SWEAT [None]
  - DIABETES MELLITUS [None]
  - DIARRHOEA [None]
  - DIZZINESS [None]
  - FOOD POISONING [None]
  - HEADACHE [None]
  - INFLUENZA [None]
  - INTENTIONAL DRUG MISUSE [None]
  - NAUSEA [None]
  - OVERDOSE [None]
  - VOMITING [None]
